FAERS Safety Report 7556609-X (Version None)
Quarter: 2011Q2

REPORT INFORMATION
  Report Type: 
  Country: None (occurrence: None)
  Receive Date: 20110610
  Receipt Date: 20110530
  Transmission Date: 20111010
  Serious: Yes (Other)
  Sender: FDA-Public Use
  Company Number: 2011SP024650

PATIENT
  Sex: Female

DRUGS (1)
  1. IMPLANON [Suspect]
     Indication: CONTRACEPTION
     Dosage: SC
     Route: 058

REACTIONS (3)
  - SENSATION OF FOREIGN BODY [None]
  - HYPOTHYROIDISM [None]
  - MENSTRUATION IRREGULAR [None]
